FAERS Safety Report 4468596-1 (Version None)
Quarter: 2004Q3

REPORT INFORMATION
  Report Type: 
  Country: None (occurrence: None)
  Receive Date: 20040917
  Receipt Date: 20040520
  Transmission Date: 20050211
  Serious: No
  Sender: FDA-Public Use
  Company Number: US-JNJFOC-20040505450

PATIENT
  Age: 15 Year
  Sex: Female
  Weight: 77.1115 kg

DRUGS (3)
  1. ORTHO EVRA [Suspect]
     Indication: CONTRACEPTION
     Dosage: 1 DOSE (S), 3 IN 4 WEEK, TRANSDERMAL
     Route: 062
     Dates: start: 20031201
  2. ZOLOFT [Concomitant]
  3. INDERAL [Concomitant]

REACTIONS (2)
  - APPLICATION SITE REACTION [None]
  - MIGRAINE [None]
